FAERS Safety Report 8943772 (Version 3)
Quarter: 2012Q4

REPORT INFORMATION
  Report Type: Report from Study
  Country: JP (occurrence: JP)
  Receive Date: 20121204
  Receipt Date: 20121221
  Transmission Date: 20130627
  Serious: Yes (Other)
  Sender: FDA-Public Use
  Company Number: JP-PFIZER INC-2012303339

PATIENT
  Age: 73 Year
  Sex: Female
  Weight: 50 kg

DRUGS (8)
  1. ATORVASTATIN CALCIUM [Suspect]
     Dosage: UNK
     Route: 065
  2. PROGRAF [Suspect]
     Indication: RHEUMATOID ARTHRITIS
     Dosage: 2 mg, 1x/day
     Route: 048
  3. TOCILIZUMAB [Suspect]
     Indication: RHEUMATOID ARTHRITIS
     Dosage: 400 mg, monthly
     Route: 041
     Dates: start: 20090619
  4. LOXOPROFEN SODIUM [Suspect]
     Indication: RHEUMATOID ARTHRITIS
     Dosage: 180 mg, 1x/day
     Route: 048
  5. PREDNISOLONE [Suspect]
     Indication: RHEUMATOID ARTHRITIS
     Dosage: 5 mg, 1x/day
     Route: 048
  6. PREDNISOLONE [Suspect]
     Dosage: UNK
     Route: 048
  7. TAKEPRON [Suspect]
     Indication: PROPHYLAXIS
     Dosage: 15 mg, 1x/day
     Route: 048
  8. AZULFIDINE EN [Concomitant]
     Dosage: UNK

REACTIONS (1)
  - Platelet count decreased [Not Recovered/Not Resolved]
